FAERS Safety Report 5509903-8 (Version None)
Quarter: 2007Q4

REPORT INFORMATION
  Report Type: 
  Country: None (occurrence: None)
  Receive Date: 20071106
  Receipt Date: 20071029
  Transmission Date: 20080405
  Serious: Yes (Hospitalization)
  Sender: FDA-Public Use
  Company Number: WAES 0705USA01911

PATIENT
  Age: 73 Year
  Sex: Male
  Weight: 79.8331 kg

DRUGS (8)
  1. ZOCOR [Suspect]
     Indication: ACUTE CORONARY SYNDROME
     Dosage: 40 MG/DAILY/PO
     Route: 048
     Dates: start: 20060627
  2. PLACEBO (UNSPECIFIED) UNK [Suspect]
     Indication: ACUTE CORONARY SYNDROME
     Dosage: PO
     Route: 048
     Dates: start: 20060627
  3. PLACEBO (UNSPECIFIED) UNK [Suspect]
     Indication: ACUTE CORONARY SYNDROME
     Dosage: PO
     Route: 048
     Dates: start: 20060627
  4. COVERSYL (PERINDOPRIL ARGNINE) [Concomitant]
  5. HYPERIUM [Concomitant]
  6. PLAVIX [Concomitant]
  7. TENORMIN [Concomitant]
  8. OMEPRAZOLE [Concomitant]

REACTIONS (2)
  - PULMONARY EMBOLISM [None]
  - WEIGHT INCREASED [None]
